FAERS Safety Report 4596049-9 (Version None)
Quarter: 2005Q1

REPORT INFORMATION
  Report Type: 
  Country: None (occurrence: None)
  Receive Date: 20050224
  Receipt Date: 20050208
  Transmission Date: 20050727
  Serious: Yes (Hospitalization)
  Sender: FDA-Public Use
  Company Number: FR_050205804

PATIENT
  Age: 46 Year
  Sex: Female

DRUGS (2)
  1. GEMZAR [Suspect]
     Dates: start: 20041104, end: 20050126
  2. OXALIPLATIN [Concomitant]

REACTIONS (6)
  - ANAEMIA [None]
  - COMA [None]
  - CYTOLYTIC HEPATITIS [None]
  - HEPATIC ENCEPHALOPATHY [None]
  - HEPATOCELLULAR DAMAGE [None]
  - THROMBOCYTOPENIA [None]
